FAERS Safety Report 5043416-5 (Version None)
Quarter: 2006Q2

REPORT INFORMATION
  Report Type: 
  Country: None (occurrence: None)
  Receive Date: 20060629
  Receipt Date: 20060620
  Transmission Date: 20061013
  Serious: Yes (Other)
  Sender: FDA-Public Use
  Company Number: 2006-06-0222

PATIENT
  Age: 15 Year
  Sex: Female

DRUGS (7)
  1. PEG-INTRON [Suspect]
     Indication: HEPATITIS C
     Dosage: 50 UG
     Dates: start: 20050426, end: 20050701
  2. REBETOL [Suspect]
     Indication: HEPATITIS C
     Dosage: ORAL
     Route: 048
     Dates: start: 20050426, end: 20050523
  3. REBETOL [Suspect]
     Indication: HEPATITIS C
     Dosage: ORAL
     Route: 048
     Dates: start: 20050426, end: 20050621
  4. REBETOL [Suspect]
     Indication: HEPATITIS C
     Dosage: ORAL
     Route: 048
     Dates: start: 20050524, end: 20050621
  5. CYCLOSPORINE [Concomitant]
  6. PREDNISONE [Concomitant]
  7. AZATHIOPRINE [Concomitant]

REACTIONS (6)
  - ANAEMIA [None]
  - HEPATIC FIBROSIS [None]
  - HEPATIC NECROSIS [None]
  - HEPATITIS VIRAL [None]
  - LIVER TRANSPLANT REJECTION [None]
  - RENAL IMPAIRMENT [None]
